FAERS Safety Report 7045075-9 (Version None)
Quarter: 2010Q4

REPORT INFORMATION
  Report Type: 
  Country: None (occurrence: None)
  Receive Date: 20101014
  Receipt Date: 20101008
  Transmission Date: 20110411
  Serious: Yes (Other)
  Sender: FDA-Public Use
  Company Number: US-BAYER-201021543BCC

PATIENT
  Age: 24 Year
  Sex: Male
  Weight: 64 kg

DRUGS (2)
  1. EXTRA STRENGTH ALKA SELTZER [Suspect]
     Indication: HEADACHE
     Route: 048
     Dates: start: 20101007
  2. ALCOHOL [Concomitant]

REACTIONS (2)
  - ABDOMINAL DISCOMFORT [None]
  - RECTAL HAEMORRHAGE [None]
